FAERS Safety Report 15061340 (Version 1)
Quarter: 2018Q2

REPORT INFORMATION
  Report Type: Spontaneous
  Country: IR (occurrence: IR)
  Receive Date: 20180625
  Receipt Date: 20180625
  Transmission Date: 20180711
  Serious: Yes (Death, Hospitalization)
  Sender: FDA-Public Use
  Company Number: IR-MYLANLABS-2018M1044233

PATIENT
  Age: 25 Year
  Sex: Male

DRUGS (13)
  1. NORMAL SALINE [Concomitant]
     Active Substance: SODIUM CHLORIDE
     Indication: PROPHYLAXIS
     Route: 041
  2. GLUCAGON. [Concomitant]
     Active Substance: GLUCAGON
     Indication: PROPHYLAXIS
     Route: 042
  3. INSULIN [Concomitant]
     Active Substance: INSULIN NOS
     Indication: PROPHYLAXIS
     Dosage: 60 UNITS OF INSULIN (100 ML/H)
     Route: 065
  4. CALCIUM GLUCONATE. [Suspect]
     Active Substance: CALCIUM GLUCONATE
     Dosage: 100 MG/H (EQUAL TO 1.16 MG/KG/H)
     Route: 041
  5. NOREPINEPHRINE. [Concomitant]
     Active Substance: NOREPINEPHRINE
     Indication: PROPHYLAXIS
     Dosage: 5 MICROG/MINUTE
     Route: 041
  6. SODIUM BICARBONATE. [Concomitant]
     Active Substance: SODIUM BICARBONATE
     Indication: PRODUCT USED FOR UNKNOWN INDICATION
     Route: 050
  7. CALCIUM GLUCONATE. [Suspect]
     Active Substance: CALCIUM GLUCONATE
     Route: 050
  8. INSULIN [Concomitant]
     Active Substance: INSULIN NOS
     Dosage: 0.5 UNIT/KG/H
     Route: 065
  9. POTASSIUM CHLORIDE. [Concomitant]
     Active Substance: POTASSIUM CHLORIDE
     Indication: PROPHYLAXIS
     Dosage: 20 MEQ/L
     Route: 065
  10. CALCIUM GLUCONATE. [Suspect]
     Active Substance: CALCIUM GLUCONATE
     Indication: PROPHYLAXIS
     Route: 065
  11. DEXTROSE IN WATER [Concomitant]
     Active Substance: DEXTROSE\WATER
     Indication: PROPHYLAXIS
     Route: 065
  12. GLUCOSE [Concomitant]
     Active Substance: DEXTROSE
     Indication: PRODUCT USED FOR UNKNOWN INDICATION
     Dosage: 0.7 G/KG/H
     Route: 065
  13. AMLODIPINE [Suspect]
     Active Substance: AMLODIPINE BESYLATE
     Indication: PRODUCT USED FOR UNKNOWN INDICATION
     Dosage: INGESTED 90 TABLETS OF 5MG EACH
     Route: 048

REACTIONS (12)
  - Hypotension [Not Recovered/Not Resolved]
  - Hepatic failure [Fatal]
  - Rhabdomyolysis [Fatal]
  - Tachycardia [Not Recovered/Not Resolved]
  - Renal failure [Fatal]
  - Shock [Fatal]
  - Intentional overdose [Fatal]
  - Respiratory alkalosis [Not Recovered/Not Resolved]
  - Pulmonary oedema [Recovered/Resolved]
  - Metabolic acidosis [Not Recovered/Not Resolved]
  - Toxicity to various agents [Fatal]
  - Multiple organ dysfunction syndrome [Fatal]
